FAERS Safety Report 6516152-3 (Version None)
Quarter: 2009Q4

REPORT INFORMATION
  Report Type: 
  Country: None (occurrence: None)
  Receive Date: 20091223
  Receipt Date: 20091218
  Transmission Date: 20100525
  Serious: Yes (Life-Threatening, Hospitalization, Other)
  Sender: FDA-Public Use
  Company Number: FR-JNJFOC-20091103792

PATIENT
  Sex: Male
  Weight: 85 kg

DRUGS (14)
  1. DURAGESIC-100 [Suspect]
     Indication: PAIN
     Route: 062
  2. DURAGESIC-100 [Suspect]
     Route: 062
  3. BENEMIDE [Interacting]
     Indication: GOUT
     Route: 065
  4. APROVEL [Concomitant]
     Route: 065
  5. CELEBREX [Concomitant]
     Route: 065
  6. ELISOR [Concomitant]
     Route: 065
  7. LASILIX [Concomitant]
     Route: 065
  8. INIPOMP [Concomitant]
     Route: 065
  9. LYRICA [Concomitant]
     Route: 065
  10. DILTIAZEM [Concomitant]
     Route: 065
  11. NITRODERM [Concomitant]
     Route: 065
  12. NOCTRAN [Concomitant]
     Route: 065
  13. PLAVIX [Concomitant]
     Route: 065
  14. DAFALGAN [Concomitant]
     Route: 065

REACTIONS (5)
  - ALTERED STATE OF CONSCIOUSNESS [None]
  - APNOEA [None]
  - BRADYPNOEA [None]
  - DRUG INTERACTION [None]
  - MIOSIS [None]
